FAERS Safety Report 21989875 (Version 1)
Quarter: 2023Q1

REPORT INFORMATION
  Report Type: Spontaneous
  Country: IN (occurrence: IN)
  Receive Date: 20230214
  Receipt Date: 20230214
  Transmission Date: 20230418
  Serious: Yes (Other)
  Sender: FDA-Public Use
  Company Number: IN-PFIZER INC-PV202300022306

PATIENT
  Age: 35 Year
  Sex: Female

DRUGS (1)
  1. PALBOCICLIB [Suspect]
     Active Substance: PALBOCICLIB
     Indication: Breast cancer
     Dosage: 125 MG, 1X/DAY
     Route: 048
     Dates: start: 202207

REACTIONS (12)
  - Mastoiditis [Unknown]
  - Fracture [Unknown]
  - Biliary dilatation [Unknown]
  - Neoplasm progression [Unknown]
  - Arthralgia [Unknown]
  - Atelectasis [Unknown]
  - Hepatic steatosis [Unknown]
  - Gastric dilatation [Unknown]
  - Abdominal hernia [Unknown]
  - Bladder dilatation [Unknown]
  - Thyroiditis [Unknown]
  - Cholelithiasis [Unknown]
